FAERS Safety Report 6908279-9 (Version None)
Quarter: 2010Q3

REPORT INFORMATION
  Report Type: 
  Country: None (occurrence: None)
  Receive Date: 20100805
  Receipt Date: 20100726
  Transmission Date: 20110219
  Serious: Yes (Other)
  Sender: FDA-Public Use
  Company Number: DE-ROCHE-717540

PATIENT
  Age: 46 Year
  Sex: Female

DRUGS (4)
  1. BEVACIZUMAB [Suspect]
     Indication: OVARIAN CANCER
     Route: 065
  2. PACLITAXEL [Suspect]
     Indication: OVARIAN CANCER
     Route: 065
  3. DOXORUBICIN HCL [Suspect]
     Indication: OVARIAN CANCER
     Dosage: DRUG NAME AS PER PROTOCOL IS LIPOSOMAL DOXORUBICIN, FORM: LIPOSOMAL
     Route: 065
  4. TOPOTECAN [Suspect]
     Indication: OVARIAN CANCER
     Route: 065

REACTIONS (2)
  - MEDICATION ERROR [None]
  - NO ADVERSE EVENT [None]
